FAERS Safety Report 6759234-3 (Version None)
Quarter: 2010Q2

REPORT INFORMATION
  Report Type: 
  Country: None (occurrence: None)
  Receive Date: 20100607
  Receipt Date: 20100526
  Transmission Date: 20101027
  Serious: Yes (Other)
  Sender: FDA-Public Use
  Company Number: FR-PFIZER INC-2010067301

PATIENT
  Age: 89 Year
  Sex: Male
  Weight: 55 kg

DRUGS (9)
  1. TRIFLUCAN [Suspect]
     Indication: FUNGAL INFECTION
     Dosage: 1 DF, 1X/DAY
     Route: 048
  2. TAZOCILLINE [Interacting]
     Indication: LUNG DISORDER
     Dosage: 1 DF, 2X/DAY
     Route: 042
     Dates: start: 20090128
  3. PREVISCAN [Interacting]
     Indication: THROMBOSIS PROPHYLAXIS
     Dosage: 0.5 DF, UNK
     Route: 048
     Dates: end: 20090128
  4. PREVISCAN [Interacting]
     Dosage: 0.25 DF, UNK
     Route: 048
  5. CIPROFLOXACIN [Interacting]
     Indication: LUNG DISORDER
     Dosage: 500 MG, 1X/DAY
     Route: 048
     Dates: start: 20090128
  6. SOLUPRED [Interacting]
     Indication: CHRONIC OBSTRUCTIVE PULMONARY DISEASE
     Dosage: 20 MG, 1X/DAY
     Route: 048
  7. CEFTRIAXONE [Interacting]
     Indication: LUNG DISORDER
     Dosage: 1 G, 1X/DAY
     Route: 042
     Dates: start: 20090126, end: 20090128
  8. METRONIDAZOLE [Interacting]
     Indication: LUNG DISORDER
     Dosage: 1 DF, 3X/DAY
     Route: 042
     Dates: start: 20090126, end: 20090128
  9. TRIATEC [Concomitant]
     Indication: HYPERTENSION
     Route: 048

REACTIONS (2)
  - DRUG INTERACTION [None]
  - INTERNATIONAL NORMALISED RATIO INCREASED [None]
